FAERS Safety Report 9405094 (Version 3)
Quarter: 2013Q3

REPORT INFORMATION
  Report Type: Report from Study
  Country: US (occurrence: US)
  Receive Date: 20130717
  Receipt Date: 20130808
  Transmission Date: 20140515
  Serious: Yes (Hospitalization)
  Sender: FDA-Public Use
  Company Number: US-ACTELION-A-NJ2013-85722

PATIENT
  Age: 82 Year
  Sex: Female

DRUGS (25)
  1. TRACLEER [Suspect]
     Indication: PULMONARY ARTERIAL HYPERTENSION
     Dosage: 125 MG, BID
     Route: 048
     Dates: start: 2007
  2. CELEXA [Concomitant]
     Dosage: 20 MG, UNK
  3. NORVASC [Concomitant]
     Dosage: 10 MG, UNK
  4. INDURGAN [Concomitant]
     Dosage: 30 MG, BID
  5. IRON [Concomitant]
     Dosage: 325 MG, UNK
  6. SINGULAIR [Concomitant]
     Dosage: UNK
  7. L THYROXINE [Concomitant]
     Dosage: 75 MEQ, UNK
  8. ZEMPLAR [Concomitant]
     Dosage: 1 MEQ, UNK
  9. DEPROZEL [Concomitant]
     Dosage: 20 MG, BID
  10. FLONASE [Concomitant]
     Dosage: UNK, BID
  11. ADVAIR [Concomitant]
     Dosage: 250/50 PUFF, BID
  12. SPIRIVA [Concomitant]
     Dosage: UNK
  13. FENTANYL [Concomitant]
     Dosage: 25 Q72 HOURS
     Route: 003
  14. NORCO [Concomitant]
     Dosage: UNK
  15. TRAMADOL [Concomitant]
     Dosage: 50 MG, UNK
  16. FLECTOR [Concomitant]
     Dosage: UNK
     Route: 003
  17. LIDOCAINE [Concomitant]
     Dosage: UNK
     Route: 003
  18. WELLBUTRIN [Concomitant]
     Dosage: 150 MG, BID
  19. MAGNESIUM [Concomitant]
     Dosage: HALF TABLET
  20. KLONOPIN [Concomitant]
     Dosage: UNK
  21. PRESERVISION EYE VITAMIN AND MINERAL SUPPL. [Concomitant]
     Dosage: UNK
  22. EXELON [Concomitant]
     Dosage: UNK
  23. NAMENDA [Concomitant]
     Dosage: 3 MG, BID
  24. LASIX [Concomitant]
     Dosage: 40 MG, BID
  25. ALBUTEROL [Concomitant]
     Dosage: 2 PUFF, BID

REACTIONS (6)
  - Gastroenteritis viral [Recovering/Resolving]
  - Vomiting [Recovering/Resolving]
  - Diarrhoea [Recovering/Resolving]
  - Dehydration [Recovering/Resolving]
  - Unresponsive to stimuli [Recovering/Resolving]
  - Haemoptysis [Recovered/Resolved]
